FAERS Safety Report 9601327 (Version 1)
Quarter: 2013Q4

REPORT INFORMATION
  Report Type: Spontaneous
  Country: US (occurrence: US)
  Receive Date: 20131007
  Receipt Date: 20131007
  Transmission Date: 20140711
  Serious: No
  Sender: FDA-Public Use
  Company Number: US-009507513-1310USA000961

PATIENT
  Sex: Female

DRUGS (6)
  1. IMPLANON [Suspect]
     Indication: CONTRACEPTION
     Dosage: UNK
     Route: 023
     Dates: start: 201109
  2. IRON (UNSPECIFIED) [Concomitant]
  3. MIDRIN [Concomitant]
  4. PREDNISONE [Concomitant]
  5. IMITREX (SUMATRIPTAN) [Concomitant]
  6. TRETINOIN [Concomitant]

REACTIONS (6)
  - Haemorrhage [Not Recovered/Not Resolved]
  - Migraine [Not Recovered/Not Resolved]
  - Nausea [Not Recovered/Not Resolved]
  - Medical device complication [Not Recovered/Not Resolved]
  - Device dislocation [Not Recovered/Not Resolved]
  - Incorrect drug administration duration [Not Recovered/Not Resolved]
